FAERS Safety Report 9536596 (Version 2)
Quarter: 2014Q1

REPORT INFORMATION
  Report Type: Spontaneous
  Country: US (occurrence: US)
  Receive Date: 20130919
  Receipt Date: 20140127
  Transmission Date: 20141002
  Serious: Yes (Hospitalization)
  Sender: FDA-Public Use
  Company Number: US-B.I. PHARMACEUTICALS,INC./RIDGEFIELD-2013-BI-29081BP

PATIENT
  Age: 71 Year
  Sex: Male
  Weight: 70.31 kg

DRUGS (12)
  1. PRADAXA [Suspect]
     Indication: ATRIAL FIBRILLATION
     Dosage: 300 MG
     Dates: start: 20110624, end: 20120917
  2. AMIODARONE [Concomitant]
     Dosage: 400 MG
  3. ASPIRIN [Concomitant]
     Dosage: 81 MG
  4. COREG [Concomitant]
     Dosage: 25 MG
  5. CRESTOR [Concomitant]
     Dosage: 20 MG
  6. FLEXERIL [Concomitant]
     Dosage: 20 MG
  7. LASIX [Concomitant]
     Dosage: 80 MG
  8. LISINOPRIL [Concomitant]
     Dosage: 2.5 MG
  9. NEXIUM [Concomitant]
     Dosage: 40 MG
  10. POTASSIUM CHLORIDE [Concomitant]
     Dosage: 10 MEQ
  11. COMBIVENT [Concomitant]
  12. VENTOLIN HFA [Concomitant]
     Route: 055

REACTIONS (2)
  - Gastrointestinal haemorrhage [Unknown]
  - Anaemia [Unknown]
